FAERS Safety Report 8519919 (Version 4)
Quarter: 2018Q1

REPORT INFORMATION
  Report Type: Spontaneous
  Country: US (occurrence: US)
  Receive Date: 20120418
  Receipt Date: 20180124
  Transmission Date: 20180509
  Serious: Yes (Other)
  Sender: FDA-Public Use
  Company Number: US-ROCHE-1057308

PATIENT
  Age: 9 Year
  Sex: Male

DRUGS (1)
  1. TAMIFLU [Suspect]
     Active Substance: OSELTAMIVIR PHOSPHATE
     Indication: INFLUENZA
     Route: 048
     Dates: start: 20120403, end: 20120404

REACTIONS (7)
  - Crying [Recovered/Resolved]
  - Personality change [Unknown]
  - Speech disorder [Recovered/Resolved]
  - Nightmare [Unknown]
  - Hallucination [Recovered/Resolved]
  - Unevaluable event [Recovered/Resolved]
  - Fear [Unknown]

NARRATIVE: CASE EVENT DATE: 20120403
